FAERS Safety Report 11020609 (Version 1)
Quarter: 2015Q2

REPORT INFORMATION
  Report Type: Spontaneous
  Country: US (occurrence: US)
  Receive Date: 20150413
  Receipt Date: 20150413
  Transmission Date: 20150821
  Serious: Yes (Hospitalization, Other)
  Sender: FDA-Public Use
  Company Number: US-AMGEN-USASP2015035032

PATIENT
  Age: 52 Year
  Sex: Female

DRUGS (2)
  1. ENBREL [Suspect]
     Active Substance: ETANERCEPT
     Indication: ANKYLOSING SPONDYLITIS
     Dosage: 40 MG, QWK
     Route: 065
     Dates: start: 20130701
  2. COUMADIN [Suspect]
     Active Substance: WARFARIN SODIUM
     Indication: COAGULOPATHY
     Dosage: UNK
     Route: 065

REACTIONS (6)
  - Pharyngitis streptococcal [Not Recovered/Not Resolved]
  - Sinusitis [Not Recovered/Not Resolved]
  - Nasopharyngitis [Not Recovered/Not Resolved]
  - Influenza [Not Recovered/Not Resolved]
  - Viral upper respiratory tract infection [Recovering/Resolving]
  - Renal haemorrhage [Recovered/Resolved]

NARRATIVE: CASE EVENT DATE: 2014
